FAERS Safety Report 22947189 (Version 2)
Quarter: 2023Q4

REPORT INFORMATION
  Report Type: Spontaneous
  Country: US (occurrence: US)
  Receive Date: 20230915
  Receipt Date: 20231218
  Transmission Date: 20240110
  Serious: No
  Sender: FDA-Public Use
  Company Number: US-ALVOGEN-2023092142

PATIENT
  Sex: Female

DRUGS (1)
  1. LENALIDOMIDE [Suspect]
     Active Substance: LENALIDOMIDE
     Indication: Plasma cell myeloma
     Dosage: FREQUENCY: 21?STRENGTH: 11.25 MILLIGRAM(S) (15 MILLIGRAM(S), 21 IN 28 DAY)
     Route: 065

REACTIONS (1)
  - Human chorionic gonadotropin increased [Unknown]
